FAERS Safety Report 12949818 (Version 1)
Quarter: 2016Q4

REPORT INFORMATION
  Report Type: Spontaneous
  Country: US (occurrence: US)
  Receive Date: 20161116
  Receipt Date: 20161116
  Transmission Date: 20170207
  Serious: Yes (Hospitalization)
  Sender: FDA-Public Use
  Company Number: None

PATIENT
  Age: 42 Year
  Sex: Female
  Weight: 107.9 kg

DRUGS (5)
  1. MERCAPTOPURINE. [Suspect]
     Active Substance: MERCAPTOPURINE
     Dates: end: 20161016
  2. CYTARABINE. [Suspect]
     Active Substance: CYTARABINE
     Dates: end: 20161013
  3. METHOTREXATE. [Suspect]
     Active Substance: METHOTREXATE
     Dates: end: 20161024
  4. ONCASPAR [Suspect]
     Active Substance: PEGASPARGASE
     Dates: end: 20161017
  5. CYCLOPHOSPHAMIDE. [Suspect]
     Active Substance: CYCLOPHOSPHAMIDE
     Dates: end: 20161003

REACTIONS (7)
  - Malaise [None]
  - Nausea [None]
  - Chills [None]
  - Blood count abnormal [None]
  - Blood lactic acid increased [None]
  - Vomiting [None]
  - Posture abnormal [None]

NARRATIVE: CASE EVENT DATE: 20161109
